FAERS Safety Report 18519441 (Version 2)
Quarter: 2021Q3

REPORT INFORMATION
  Report Type: Report from Study
  Country: US (occurrence: US)
  Receive Date: 20201118
  Receipt Date: 20210929
  Transmission Date: 20211014
  Serious: No
  Sender: FDA-Public Use
  Company Number: US-PFIZER INC-2020190905

PATIENT
  Age: 68 Year
  Sex: Female

DRUGS (8)
  1. PROPANOLOL [Concomitant]
     Active Substance: PROPRANOLOL HYDROCHLORIDE
     Dosage: UNK [DECREASE IN PROPANOLOL BY HALF DOSE]
  2. PROPANOLOL [Concomitant]
     Active Substance: PROPRANOLOL HYDROCHLORIDE
     Dosage: 20 MG, 1X/DAY
  3. CHANTIX [Concomitant]
     Active Substance: VARENICLINE TARTRATE
     Dosage: UNK
  4. IBRANCE [Suspect]
     Active Substance: PALBOCICLIB
     Dosage: 125 MG, CYCLIC (DAILY 21 DAYS, OFF 7 DAYS)
     Route: 048
     Dates: start: 20210816, end: 20210914
  5. PROPANOLOL [Concomitant]
     Active Substance: PROPRANOLOL HYDROCHLORIDE
     Dosage: 20 MG, 2X/DAY
  6. FASLODEX [Concomitant]
     Active Substance: FULVESTRANT
  7. IBRANCE [Suspect]
     Active Substance: PALBOCICLIB
     Indication: BREAST CANCER METASTATIC
     Dosage: 125 MG, CYCLIC (DAILY, 21 DAYS ON, OFF 7 DAYS)
     Route: 048
     Dates: start: 20200512, end: 20201026
  8. ANASTROZOLE. [Concomitant]
     Active Substance: ANASTROZOLE
     Dosage: UNK, DAILY
     Dates: start: 20200512

REACTIONS (17)
  - Red blood cell count decreased [Recovering/Resolving]
  - Haemoglobin decreased [Unknown]
  - Asthenia [Unknown]
  - Heart rate abnormal [Unknown]
  - Malaise [Unknown]
  - Diarrhoea [Unknown]
  - Blood pressure decreased [Recovering/Resolving]
  - Hypotension [Recovering/Resolving]
  - Platelet count decreased [Unknown]
  - Neoplasm progression [Unknown]
  - White blood cell count decreased [Not Recovered/Not Resolved]
  - Feeling cold [Unknown]
  - Somnolence [Unknown]
  - Headache [Recovered/Resolved]
  - Nausea [Recovered/Resolved]
  - Fatigue [Unknown]
  - Hypersomnia [Unknown]

NARRATIVE: CASE EVENT DATE: 2020
